FAERS Safety Report 13045590 (Version 1)
Quarter: 2016Q4

REPORT INFORMATION
  Report Type: Spontaneous
  Country: US (occurrence: US)
  Receive Date: 20161220
  Receipt Date: 20161220
  Transmission Date: 20170207
  Serious: No
  Sender: FDA-Public Use
  Company Number: None

PATIENT
  Age: 73 Year
  Sex: Male
  Weight: 83.08 kg

DRUGS (7)
  1. METRONIDAZOLE. [Suspect]
     Active Substance: METRONIDAZOLE
     Indication: GASTROINTESTINAL DISORDER
     Dosage: 16 PILLS 2/DAY, MOUTH
     Route: 048
     Dates: start: 20161101, end: 20161106
  2. SIMVASTATIN. [Concomitant]
     Active Substance: SIMVASTATIN
  3. VITAMIN D [Concomitant]
     Active Substance: CHOLECALCIFEROL
  4. SAW PALMETTO [Concomitant]
     Active Substance: SAW PALMETTO
  5. TUMERIC [Concomitant]
     Active Substance: TURMERIC
  6. CARVEDIOL [Concomitant]
     Active Substance: CARVEDILOL
  7. MULTIVITAMIN [Concomitant]
     Active Substance: VITAMINS

REACTIONS (1)
  - Oral candidiasis [None]

NARRATIVE: CASE EVENT DATE: 20161126
